FAERS Safety Report 8807091 (Version 2)
Quarter: 2013Q1

REPORT INFORMATION
  Report Type: Spontaneous
  Country: US (occurrence: US)
  Receive Date: 20120925
  Receipt Date: 20130228
  Transmission Date: 20140127
  Serious: Yes (Death)
  Sender: FDA-Public Use
  Company Number: US-ROCHE-1125858

PATIENT
  Sex: Male

DRUGS (2)
  1. AVASTIN [Suspect]
     Indication: PANCREATIC CARCINOMA
     Dosage: 1 DOSE
     Route: 065
  2. AVASTIN [Suspect]
     Indication: COLON CANCER

REACTIONS (3)
  - Pancreatic carcinoma [Fatal]
  - Colon cancer [Fatal]
  - Prostate cancer [Fatal]
